FAERS Safety Report 4451256-0 (Version None)
Quarter: 2004Q3

REPORT INFORMATION
  Report Type: 
  Country: None (occurrence: None)
  Receive Date: 20040916
  Receipt Date: 20040907
  Transmission Date: 20050211
  Serious: Yes (Life-Threatening, Hospitalization)
  Sender: FDA-Public Use
  Company Number: GB-BRISTOL-MYERS SQUIBB COMPANY-12693339

PATIENT
  Age: 24 Year
  Sex: Male
  Weight: 77 kg

DRUGS (20)
  1. AZTREONAM [Suspect]
     Indication: INFECTION
     Route: 042
     Dates: start: 20040816, end: 20040816
  2. DIAZEPAM [Concomitant]
     Indication: ANXIETY
     Route: 048
  3. CREON [Concomitant]
     Indication: PANCREATIC INSUFFICIENCY
     Route: 048
  4. GENTAMYCIN SULFATE [Concomitant]
     Route: 042
     Dates: start: 20040816, end: 20040816
  5. LANTUS [Concomitant]
     Indication: DIABETES MELLITUS
     Dosage: NOCTE
     Route: 058
  6. NOVORAPID [Concomitant]
     Route: 058
  7. NOVORAPID [Concomitant]
     Route: 058
  8. TRAZODONE HCL [Concomitant]
     Indication: ANXIETY
     Dosage: 50 MG MANE, 200 MG NOCTE
     Route: 048
     Dates: start: 20040806
  9. OMEPRAZOLE [Concomitant]
     Route: 048
  10. VITAMIN E ACETATE [Concomitant]
     Indication: HYPOVITAMINOSIS
     Route: 048
  11. VITAMIN A [Concomitant]
     Indication: HYPOVITAMINOSIS
     Dosage: X2
     Route: 048
  12. VITAMIN D [Concomitant]
     Indication: HYPOVITAMINOSIS
     Dosage: X2
     Route: 048
  13. ATROVENT [Concomitant]
     Route: 055
  14. PULMICORT [Concomitant]
     Route: 045
  15. GAVISCON [Concomitant]
     Route: 048
  16. VITAMIN K TAB [Concomitant]
  17. SERETIDE [Concomitant]
     Route: 055
  18. PREDNISOLONE [Concomitant]
     Route: 048
  19. FLUCLOXACILLIN [Concomitant]
     Route: 048
  20. AZITHROMYCIN [Concomitant]
     Route: 048

REACTIONS (1)
  - ANAPHYLACTIC SHOCK [None]
